FAERS Safety Report 20031056 (Version 1)
Quarter: 2021Q4

REPORT INFORMATION
  Report Type: Spontaneous
  Country: US (occurrence: US)
  Receive Date: 20211103
  Receipt Date: 20211103
  Transmission Date: 20220303
  Serious: No
  Sender: FDA-Public Use
  Company Number: US-ALLERGAN-2047281US

PATIENT
  Age: 41 Year
  Sex: Male

DRUGS (2)
  1. VRAYLAR [Suspect]
     Active Substance: CARIPRAZINE
     Indication: Bipolar II disorder
     Dosage: 1.5 MG, QD
     Route: 048
     Dates: start: 202003, end: 202010
  2. VRAYLAR [Suspect]
     Active Substance: CARIPRAZINE
     Indication: Depression

REACTIONS (8)
  - Pain [Recovering/Resolving]
  - Groin pain [Recovering/Resolving]
  - Testicular pain [Recovering/Resolving]
  - Off label use [Unknown]
  - Dysstasia [Recovering/Resolving]
  - Impaired work ability [Recovering/Resolving]
  - Irritability [Not Recovered/Not Resolved]
  - Anxiety [Not Recovered/Not Resolved]

NARRATIVE: CASE EVENT DATE: 20200101
